FAERS Safety Report 9735504 (Version 2)
Quarter: 2013Q4

REPORT INFORMATION
  Report Type: Spontaneous
  Country: US (occurrence: US)
  Receive Date: 20131206
  Receipt Date: 20131206
  Transmission Date: 20140711
  Serious: No
  Sender: FDA-Public Use
  Company Number: US-GILEAD-2009-0023264

PATIENT
  Sex: Female

DRUGS (19)
  1. LETAIRIS [Suspect]
     Indication: PULMONARY ARTERIAL HYPERTENSION
     Route: 048
     Dates: start: 20090615
  2. MACRODANTIN [Suspect]
  3. LASIX [Concomitant]
  4. ZOLOFT [Concomitant]
  5. CARVEDILOL [Concomitant]
  6. ADVAIR DISKU MIS [Concomitant]
  7. ATACAND [Concomitant]
  8. NEXIUM [Concomitant]
  9. SPIRONOLACTONE [Concomitant]
  10. PLAVIX [Concomitant]
  11. MICARDIS [Concomitant]
  12. CALCIUM + VITAMIN D [Concomitant]
  13. MUCINEX [Concomitant]
  14. ZETIA [Concomitant]
  15. MULTIVITAMIN [Concomitant]
  16. URSO FORTE [Concomitant]
  17. ALBUTEROL [Concomitant]
  18. NITROLINGUAL [Concomitant]
  19. ASPIRIN ADULT [Concomitant]

REACTIONS (2)
  - White blood cell count decreased [Recovered/Resolved]
  - Platelet count decreased [Recovered/Resolved]
